FAERS Safety Report 9034259 (Version 1)
Quarter: 2013Q1

REPORT INFORMATION
  Report Type: Spontaneous
  Country: US (occurrence: None)
  Receive Date: 20130116
  Receipt Date: 20130116
  Transmission Date: 20140127
  Serious: No
  Sender: FDA-Public Use
  Company Number: None

PATIENT
  Age: 64 Year
  Sex: Male
  Weight: 92.99 kg

DRUGS (2)
  1. STRATTERA [Suspect]
     Route: 048
     Dates: start: 20121201, end: 20121221
  2. STRATTERA [Suspect]
     Route: 048

REACTIONS (1)
  - Erectile dysfunction [None]
